FAERS Safety Report 6416999-8 (Version None)
Quarter: 2009Q4

REPORT INFORMATION
  Report Type: 
  Country: None (occurrence: None)
  Receive Date: 20091027
  Receipt Date: 20090803
  Transmission Date: 20100525
  Serious: No
  Sender: FDA-Public Use
  Company Number: US-ALLERGAN-0910787US

PATIENT
  Age: 63 Year
  Sex: Male

DRUGS (3)
  1. ALPHAGAN P [Suspect]
     Indication: GLAUCOMA
     Dosage: 1 GTT, SINGLE
     Route: 047
     Dates: start: 20090730, end: 20090730
  2. XALATAN [Concomitant]
     Indication: GLAUCOMA
     Dosage: UNK, QHS
     Route: 047
  3. SEPTRA [Concomitant]
     Indication: ORCHITIS
     Route: 048

REACTIONS (3)
  - NIGHTMARE [None]
  - SOMNOLENCE [None]
  - VISUAL IMPAIRMENT [None]
